FAERS Safety Report 8200895-X (Version None)
Quarter: 2012Q1

REPORT INFORMATION
  Report Type: 
  Country: None (occurrence: None)
  Receive Date: 20120312
  Receipt Date: 20110608
  Transmission Date: 20120608
  Serious: No
  Sender: FDA-Public Use
  Company Number: US-ABBOTT-11P-163-0731715-00

PATIENT
  Age: 19 Year
  Sex: Female

DRUGS (2)
  1. LUPRON DEPOT [Suspect]
     Indication: ENDOMETRIOSIS
     Route: 030
     Dates: start: 20110201
  2. LUPRON DEPOT [Suspect]
     Route: 030
     Dates: start: 20100101, end: 20100601

REACTIONS (2)
  - MYALGIA [None]
  - ARTHRALGIA [None]
